FAERS Safety Report 15273931 (Version 1)
Quarter: 2018Q3

REPORT INFORMATION
  Report Type: Report from Study
  Country: GB (occurrence: GB)
  Receive Date: 20180814
  Receipt Date: 20180814
  Transmission Date: 20181010
  Serious: Yes (Death)
  Sender: FDA-Public Use
  Company Number: GB-ACTELION-A-CH2018-177277

PATIENT
  Age: 17 Month
  Sex: Male

DRUGS (9)
  1. ZAVESCA [Suspect]
     Active Substance: MIGLUSTAT
     Indication: LIPIDOSIS
     Route: 048
  2. OMEPRAZOLE. [Concomitant]
     Active Substance: OMEPRAZOLE
  3. RANITIDINE. [Concomitant]
     Active Substance: RANITIDINE
  4. LEVETIRACETAM. [Concomitant]
     Active Substance: LEVETIRACETAM
  5. DALIVIT [Concomitant]
  6. PARACETAMOL [Concomitant]
     Active Substance: ACETAMINOPHEN
     Dosage: UNK, PRN
  7. SYTRON [Concomitant]
  8. MIDAZOLAM [Concomitant]
     Active Substance: MIDAZOLAM HYDROCHLORIDE
     Indication: SEIZURE
     Dosage: UNK, PRN
  9. SALBUTAMOL A [Concomitant]
     Dosage: UNK, PRN

REACTIONS (1)
  - Death [Fatal]
